FAERS Safety Report 9172065 (Version 2)
Quarter: 2013Q1

REPORT INFORMATION
  Report Type: Spontaneous
  Country: US (occurrence: US)
  Receive Date: 20130319
  Receipt Date: 20130327
  Transmission Date: 20140127
  Serious: Yes (Other)
  Sender: FDA-Public Use
  Company Number: CHPA2013US004423

PATIENT
  Age: 66 Year
  Sex: Female

DRUGS (2)
  1. MYOFLEX ANALGESIC CREME [Suspect]
     Indication: NEUROPATHY PERIPHERAL
     Dosage: A LITTLE BETTER THAN THE TIP OF HER FINGER, BID
     Route: 061
  2. MYOFLEX ANALGESIC CREME [Suspect]
     Dosage: A LITTLE BETTER THAN THE TIP OF MY FINGER, QD
     Route: 061

REACTIONS (8)
  - Neuropathy peripheral [Not Recovered/Not Resolved]
  - Vitamin B12 decreased [Not Recovered/Not Resolved]
  - Pernicious anaemia [Unknown]
  - Therapeutic response unexpected [Unknown]
  - Joint stiffness [Not Recovered/Not Resolved]
  - Hyperaesthesia [Not Recovered/Not Resolved]
  - Arthropathy [Not Recovered/Not Resolved]
  - Off label use [Unknown]
